FAERS Safety Report 21576858 (Version 1)
Quarter: 2022Q4

REPORT INFORMATION
  Report Type: Report from Study
  Country: GB (occurrence: GB)
  Receive Date: 20221110
  Receipt Date: 20221110
  Transmission Date: 20230112
  Serious: Yes (Hospitalization)
  Sender: FDA-Public Use
  Company Number: GB-002147023-NVSC2022GB222160

PATIENT
  Sex: Female

DRUGS (1)
  1. HYRIMOZ [Suspect]
     Active Substance: ADALIMUMAB-ADAZ
     Indication: Crohn^s disease
     Dosage: 40 MG, EVERY OTHER WEEK (2 PRE FILLED DISPOSABLE INJECTIONS)
     Route: 058

REACTIONS (2)
  - Adverse drug reaction [Unknown]
  - Sepsis [Not Recovered/Not Resolved]
